FAERS Safety Report 14856283 (Version 1)
Quarter: 2018Q2

REPORT INFORMATION
  Report Type: Spontaneous
  Country: US (occurrence: US)
  Receive Date: 20180507
  Receipt Date: 20180507
  Transmission Date: 20180711
  Serious: No
  Sender: FDA-Public Use
  Company Number: US-ROCHE-2007765

PATIENT
  Age: 72 Year
  Sex: Male

DRUGS (16)
  1. CHERATUSSIN [Concomitant]
     Active Substance: AMMONIUM CHLORIDE\DEXTROMETHORPHAN\SODIUM CITRATE
     Dosage: 100-10 MG
     Route: 065
  2. LOSARTAN POTASSIUM. [Concomitant]
     Active Substance: LOSARTAN POTASSIUM
     Route: 065
  3. ASPIRIN. [Concomitant]
     Active Substance: ASPIRIN
     Route: 065
  4. GLIPIZIDE. [Concomitant]
     Active Substance: GLIPIZIDE
     Route: 065
  5. BREO ELLIPTA [Concomitant]
     Active Substance: FLUTICASONE FUROATE\VILANTEROL TRIFENATATE
     Dosage: 100-25 MCG
     Route: 065
  6. FLUTICASONE. [Concomitant]
     Active Substance: FLUTICASONE
     Route: 065
  7. ESBRIET [Suspect]
     Active Substance: PIRFENIDONE
     Indication: IDIOPATHIC PULMONARY FIBROSIS
     Route: 048
  8. SIMVASTATIN. [Concomitant]
     Active Substance: SIMVASTATIN
     Route: 065
  9. CEFUROXIME. [Concomitant]
     Active Substance: CEFUROXIME
     Route: 065
  10. INCRUSE ELLIPTA [Concomitant]
     Active Substance: UMECLIDINIUM BROMIDE
     Route: 065
  11. LANTUS SOLOSTAR [Concomitant]
     Active Substance: INSULIN GLARGINE
     Route: 065
  12. PREDNISON [Concomitant]
     Active Substance: PREDNISONE
     Route: 065
  13. METFORMIN HYDROCHLORIDE. [Concomitant]
     Active Substance: METFORMIN HYDROCHLORIDE
     Route: 065
  14. NYSTATIN. [Concomitant]
     Active Substance: NYSTATIN
     Route: 065
  15. ESBRIET [Suspect]
     Active Substance: PIRFENIDONE
     Route: 048
     Dates: start: 201709
  16. NOVOLIN [Concomitant]
     Active Substance: INSULIN HUMAN
     Route: 065

REACTIONS (3)
  - Pruritus [Not Recovered/Not Resolved]
  - Incorrect dose administered [Unknown]
  - Pruritus [Not Recovered/Not Resolved]

NARRATIVE: CASE EVENT DATE: 201709
